FAERS Safety Report 10707958 (Version 2)
Quarter: 2015Q1

REPORT INFORMATION
  Report Type: Spontaneous
  Country: FR (occurrence: FR)
  Receive Date: 20150113
  Receipt Date: 20150113
  Transmission Date: 20150721
  Serious: Yes (Hospitalization, Other)
  Sender: FDA-Public Use
  Company Number: FR-RECKITT BENCKISER PHARMACEUTICAL, INC-RB-71157-2014

PATIENT
  Age: 33 Year
  Sex: Female
  Weight: 57 kg

DRUGS (6)
  1. BENZODIAZEPINE [Suspect]
     Active Substance: BENZODIAZEPINE
     Dosage: 20 MG DAILY
  2. BUPRENORPHINE GENERIC TAB [Suspect]
     Active Substance: BUPRENORPHINE
     Dosage: 8 MG, ONE DOSAGE FORM
     Route: 060
     Dates: start: 20140929
  3. BENZODIAZEPINE [Suspect]
     Active Substance: BENZODIAZEPINE
     Indication: PRODUCT USED FOR UNKNOWN INDICATION
     Dosage: 100 MG DAILY
     Route: 065
  4. BROMAZEPAM [Concomitant]
     Active Substance: BROMAZEPAM
     Indication: PRODUCT USED FOR UNKNOWN INDICATION
     Dosage: 6 MG DAILY
     Route: 065
     Dates: start: 2013
  5. BUPRENORPHINE GENERIC TAB [Suspect]
     Active Substance: BUPRENORPHINE
     Indication: PRODUCT USED FOR UNKNOWN INDICATION
     Dosage: 16 MG, DAILY
     Route: 060
     Dates: start: 2014, end: 20140929
  6. SUBUTEX [Suspect]
     Active Substance: BUPRENORPHINE HYDROCHLORIDE
     Indication: PRODUCT USED FOR UNKNOWN INDICATION
     Dosage: 24 MG, DAILY (UNTIL 5TH MONTH OF PREGNANCY)
     Route: 045
     Dates: end: 2014

REACTIONS (7)
  - Uterine haemorrhage [Unknown]
  - Intentional product misuse [Recovered/Resolved]
  - Maternal exposure during pregnancy [Recovered/Resolved]
  - Extra dose administered [Recovered/Resolved]
  - Premature delivery [Recovered/Resolved]
  - Retroplacental haematoma [Unknown]
  - Drug abuse [Recovered/Resolved]

NARRATIVE: CASE EVENT DATE: 2014
